FAERS Safety Report 9282978 (Version 1)
Quarter: 2013Q2

REPORT INFORMATION
  Report Type: Spontaneous
  Country: US (occurrence: US)
  Receive Date: 20130510
  Receipt Date: 20130510
  Transmission Date: 20140414
  Serious: No
  Sender: FDA-Public Use
  Company Number: US-GLAXOSMITHKLINE-A0970239A

PATIENT
  Sex: Female
  Weight: 60.9 kg

DRUGS (2)
  1. TYKERB [Suspect]
     Dosage: 1250MG SEE DOSAGE TEXT
     Route: 048
  2. MULTIVITAMIN [Concomitant]

REACTIONS (1)
  - Diarrhoea [Unknown]
